FAERS Safety Report 22386807 (Version 2)
Quarter: 2024Q3

REPORT INFORMATION
  Report Type: Spontaneous
  Country: HU (occurrence: HU)
  Receive Date: 20230531
  Receipt Date: 20240925
  Transmission Date: 20241016
  Serious: Yes (Hospitalization)
  Sender: JUBILANT
  Company Number: None

PATIENT
  Age: 77 Year
  Sex: Female

DRUGS (14)
  1. AMLODIPINE AND OLMESARTAN MEDOXOMIL [Suspect]
     Active Substance: AMLODIPINE BESYLATE\OLMESARTAN MEDOXOMIL
     Dosage: UNK,UNK
  2. SPIRONOLACTONE [Suspect]
     Active Substance: SPIRONOLACTONE
     Indication: Hypertension
     Dosage: 12.5 MG, ONCE PER DAY
  3. TELMISARTAN [Suspect]
     Active Substance: TELMISARTAN
     Indication: Hypertension
     Dosage: 80 MG, ONCE PER DAY (IN THE EVENING)
  4. DOXAZOSIN [Suspect]
     Active Substance: DOXAZOSIN\DOXAZOSIN MESYLATE
     Indication: Hypertension
     Dosage: 4 MG, ONCE PER DAY
  5. DOXAZOSIN [Suspect]
     Active Substance: DOXAZOSIN\DOXAZOSIN MESYLATE
     Dosage: 8 MG, ONCE PER DAY (4 MG, 2X PER DAY RETARD )
  6. LERCANIDIPINE [Suspect]
     Active Substance: LERCANIDIPINE
     Indication: Hypertension
     Dosage: 20 MG, ONCE PER DAY (IN THE MORNING)
  7. LERCANIDIPINE [Suspect]
     Active Substance: LERCANIDIPINE
     Dosage: 5 MG, ONCE PER DAY (IN THE EVENING)
  8. LERCANIDIPINE [Suspect]
     Active Substance: LERCANIDIPINE
     Dosage: 25 MG, ONCE PER DAY (IN THE MORNING)
  9. RILMENIDINE [Suspect]
     Active Substance: RILMENIDINE
     Indication: Hypertension
     Dosage: 1 MG, ONCE PER DAY
  10. RILMENIDINE [Suspect]
     Active Substance: RILMENIDINE
     Dosage: 2 MG, ONCE PER DAY
  11. URAPIDIL [Suspect]
     Active Substance: URAPIDIL
     Indication: Hypertension
     Dosage: 60 MG, ONCE PER DAY
  12. URAPIDIL [Suspect]
     Active Substance: URAPIDIL
     Dosage: 180 MG, ONCE PER DAY (60 MG, 3X PER DAY)
  13. HYDROCHLOROTHIAZIDE\TELMISARTAN [Suspect]
     Active Substance: HYDROCHLOROTHIAZIDE\TELMISARTAN
     Indication: Hypertension
     Dosage: 1 DOSAGE FORM, ONCE PER DAY (80/25 MG/MG)
  14. HYDROCHLOROTHIAZIDE\TELMISARTAN [Suspect]
     Active Substance: HYDROCHLOROTHIAZIDE\TELMISARTAN
     Dosage: 1 DOSAGE FORM, ONCE PER DAY (80/25 MG/MG)

REACTIONS (4)
  - Accelerated hypertension [Unknown]
  - Heart rate increased [Unknown]
  - Blood pressure decreased [Unknown]
  - Peripheral swelling [Unknown]
